FAERS Safety Report 12419660 (Version 1)
Quarter: 2016Q2

REPORT INFORMATION
  Report Type: Spontaneous
  Country: CA (occurrence: CA)
  Receive Date: 20160531
  Receipt Date: 20160531
  Transmission Date: 20160815
  Serious: Yes (Hospitalization)
  Sender: FDA-Public Use
  Company Number: CA-NOVOPROD-493046

PATIENT
  Sex: Male
  Weight: 159 kg

DRUGS (3)
  1. VICTOZA [Suspect]
     Active Substance: LIRAGLUTIDE
     Indication: PRODUCT USED FOR UNKNOWN INDICATION
     Dosage: 0.6 MG, QD
     Route: 065
  2. LANTUS [Concomitant]
     Active Substance: INSULIN GLARGINE
     Dosage: 60 U, QD
  3. APIDRA [Concomitant]
     Active Substance: INSULIN GLULISINE
     Dosage: 40 U, TID

REACTIONS (2)
  - Prostatitis [Unknown]
  - Pyelonephritis [Unknown]
